FAERS Safety Report 7911662 (Version 4)
Quarter: 2015Q1

REPORT INFORMATION
  Report Type: Report from Study
  Country: US (occurrence: US)
  Receive Date: 20110422
  Receipt Date: 20150210
  Transmission Date: 20150721
  Serious: Yes (Death, Hospitalization, Other)
  Sender: FDA-Public Use
  Company Number: US-ELI_LILLY_AND_COMPANY-US201104004718

PATIENT
  Age: 58 Year
  Sex: Female

DRUGS (4)
  1. SOMATROPIN [Suspect]
     Active Substance: SOMATROPIN
     Indication: GROWTH HORMONE DEFICIENCY
     Dosage: 0.03 MG, QD
     Route: 065
     Dates: start: 20100716, end: 20100826
  2. DEXAMETHASONE. [Concomitant]
     Active Substance: DEXAMETHASONE
     Dosage: UNK, UNKNOWN
  3. SOMATROPIN [Suspect]
     Active Substance: SOMATROPIN
     Indication: HYPOPITUITARISM
     Dosage: UNK, UNKNOWN
     Route: 065
     Dates: start: 20110803
  4. SOMATROPIN [Suspect]
     Active Substance: SOMATROPIN
     Dosage: 500 UG, UNKNOWN
     Route: 065

REACTIONS (6)
  - Death [Fatal]
  - Pneumonia [Recovering/Resolving]
  - Procedural complication [Recovering/Resolving]
  - Foreign body aspiration [Recovering/Resolving]
  - Pulmonary fibrosis [Recovering/Resolving]
  - Fall [Unknown]

NARRATIVE: CASE EVENT DATE: 20100826
